FAERS Safety Report 9493996 (Version 2)
Quarter: 2013Q3

REPORT INFORMATION
  Report Type: Spontaneous
  Country: US (occurrence: US)
  Receive Date: 20130903
  Receipt Date: 20130927
  Transmission Date: 20140515
  Serious: No
  Sender: FDA-Public Use
  Company Number: US-009507513-1308USA009961

PATIENT
  Sex: Female
  Weight: 95.24 kg

DRUGS (1)
  1. IMPLANON [Suspect]
     Dosage: 1 DF, UNK
     Route: 030
     Dates: start: 20100921

REACTIONS (4)
  - Device dislocation [Not Recovered/Not Resolved]
  - Device deployment issue [Unknown]
  - Device difficult to use [Unknown]
  - Incorrect route of drug administration [Unknown]
